FAERS Safety Report 12428615 (Version 2)
Quarter: 2016Q3

REPORT INFORMATION
  Report Type: Spontaneous
  Country: US (occurrence: US)
  Receive Date: 20160602
  Receipt Date: 20160801
  Transmission Date: 20161109
  Serious: Yes (Hospitalization)
  Sender: FDA-Public Use
  Company Number: US-BAYER-2016-103270

PATIENT
  Age: 20 Year
  Sex: Female
  Weight: 49.89 kg

DRUGS (4)
  1. SYNTHROID [Concomitant]
     Active Substance: LEVOTHYROXINE SODIUM
  2. PERCOCET [Concomitant]
     Active Substance: ACETAMINOPHEN\OXYCODONE HYDROCHLORIDE
  3. MIRENA [Suspect]
     Active Substance: LEVONORGESTREL
     Indication: CONTRACEPTION
     Dosage: 20 MCG/24HR, CONT
     Route: 015
     Dates: start: 20100104, end: 20140505
  4. COLACE [Concomitant]
     Active Substance: DOCUSATE SODIUM

REACTIONS (12)
  - Complication of device removal [None]
  - Urinary tract infection [None]
  - Genital haemorrhage [Not Recovered/Not Resolved]
  - Pelvic pain [None]
  - Pollakiuria [None]
  - Bowel movement irregularity [None]
  - Gastrointestinal pain [None]
  - Device breakage [None]
  - Uterine perforation [None]
  - Adhesion [None]
  - Abdominal pain lower [None]
  - Abdominal tenderness [None]

NARRATIVE: CASE EVENT DATE: 20110309
